FAERS Safety Report 24781211 (Version 1)
Quarter: 2024Q4

REPORT INFORMATION
  Report Type: Spontaneous
  Country: US (occurrence: US)
  Receive Date: 20241227
  Receipt Date: 20241227
  Transmission Date: 20250115
  Serious: Yes (Hospitalization, Disabling, Other)
  Sender: AMGEN
  Company Number: US-AMGEN-USASP2024250737

PATIENT
  Age: 56 Year
  Sex: Male

DRUGS (5)
  1. REPATHA [Suspect]
     Active Substance: EVOLOCUMAB
     Indication: Blood cholesterol abnormal
     Dosage: UNK, Q2WK
     Route: 065
  2. CYCLOSPORINE [Concomitant]
     Active Substance: CYCLOSPORINE
  3. LOSARTAN [Concomitant]
     Active Substance: LOSARTAN
  4. ASPIRIN [Concomitant]
     Active Substance: ASPIRIN
  5. METOPROLOL [Concomitant]
     Active Substance: METOPROLOL

REACTIONS (5)
  - Haemorrhage urinary tract [Not Recovered/Not Resolved]
  - Platelet transfusion [Not Recovered/Not Resolved]
  - Dry mouth [Not Recovered/Not Resolved]
  - Sensory disturbance [Not Recovered/Not Resolved]
  - Pollakiuria [Not Recovered/Not Resolved]
